FAERS Safety Report 7100179-7 (Version None)
Quarter: 2010Q4

REPORT INFORMATION
  Report Type: 
  Country: None (occurrence: None)
  Receive Date: 20101112
  Receipt Date: 20100811
  Transmission Date: 20110411
  Serious: No
  Sender: FDA-Public Use
  Company Number: A0875197A

PATIENT
  Age: 79 Year
  Sex: Female

DRUGS (9)
  1. CARVEDILOL [Suspect]
     Dosage: 25MG TWICE PER DAY
     Route: 048
     Dates: start: 20040101
  2. ASPIRIN [Concomitant]
  3. AVALIDE [Concomitant]
  4. MULTI-VITAMIN [Concomitant]
  5. GLUCOSAMINE [Concomitant]
  6. PLAVIX [Concomitant]
  7. ZETIA [Concomitant]
  8. LOVAZA [Concomitant]
  9. ALLEGRA [Concomitant]

REACTIONS (3)
  - BLOOD PRESSURE INCREASED [None]
  - CHEST PAIN [None]
  - DRUG INEFFECTIVE [None]
